FAERS Safety Report 18317760 (Version 1)
Quarter: 2020Q3

REPORT INFORMATION
  Report Type: Spontaneous
  Country: US (occurrence: US)
  Receive Date: 20200928
  Receipt Date: 20200928
  Transmission Date: 20201103
  Serious: No
  Sender: FDA-Public Use
  Company Number: US-ALLERGAN-1943735US

PATIENT
  Age: 17 Year
  Sex: Female

DRUGS (2)
  1. HELTIOZ [Concomitant]
     Indication: CIRCADIAN RHYTHM SLEEP DISORDER
     Dosage: 20 MG, QD
     Route: 048
     Dates: start: 20181013
  2. LEXAPRO [Suspect]
     Active Substance: ESCITALOPRAM OXALATE
     Indication: DEPRESSION
     Dosage: UNK
     Route: 065
     Dates: start: 201908

REACTIONS (3)
  - Anxiety [Unknown]
  - Depression [Unknown]
  - Middle insomnia [Unknown]
